FAERS Safety Report 5564478-2 (Version None)
Quarter: 2007Q4

REPORT INFORMATION
  Report Type: 
  Country: None (occurrence: None)
  Receive Date: 20071218
  Receipt Date: 20071210
  Transmission Date: 20080405
  Serious: Yes (Other)
  Sender: FDA-Public Use
  Company Number: US-ASTRAZENECA-2007UW28200

PATIENT
  Age: 58 Year
  Sex: Female
  Weight: 45.4 kg

DRUGS (4)
  1. ARIMIDEX [Suspect]
     Indication: BREAST CANCER STAGE IV
     Route: 048
  2. FASLODEX [Suspect]
     Indication: BREAST CANCER STAGE IV
     Dosage: 5 ML PREFILLED SYRINGE
  3. TAMOXIFEN CITRATE [Suspect]
     Indication: BREAST CANCER STAGE IV
     Route: 048
  4. ZOMETA [Suspect]
     Route: 042

REACTIONS (4)
  - BACK PAIN [None]
  - DISEASE RECURRENCE [None]
  - SPINAL FRACTURE [None]
  - STOMACH DISCOMFORT [None]
